FAERS Safety Report 10076005 (Version 1)
Quarter: 2014Q2

REPORT INFORMATION
  Report Type: Spontaneous
  Country: US (occurrence: None)
  Receive Date: 20140410
  Receipt Date: 20140410
  Transmission Date: 20141212
  Serious: Yes (Death, Hospitalization)
  Sender: FDA-Public Use
  Company Number: 2014/020

PATIENT
  Age: 39 Year
  Sex: Male

DRUGS (7)
  1. VALPROIC ACID [Suspect]
     Indication: CONVULSION
  2. TENOFOVIR [Concomitant]
  3. EMTRICITABINE [Concomitant]
  4. LOPINAVIR/RITONAVIR [Concomitant]
  5. DAPSONE [Concomitant]
  6. AZITHROMYCIN [Concomitant]
  7. ETHAMBUTOL [Concomitant]

REACTIONS (10)
  - Vanishing bile duct syndrome [None]
  - Pancytopenia [None]
  - Renal failure acute [None]
  - Hepatomegaly [None]
  - Pneumonia [None]
  - Lung infiltration [None]
  - Confusional state [None]
  - Haemodialysis [None]
  - Metabolic acidosis [None]
  - Multi-organ failure [None]
